FAERS Safety Report 6386465-7 (Version None)
Quarter: 2009Q4

REPORT INFORMATION
  Report Type: 
  Country: None (occurrence: None)
  Receive Date: 20091002
  Receipt Date: 20090608
  Transmission Date: 20100525
  Serious: No
  Sender: FDA-Public Use
  Company Number: US-ASTRAZENECA-2009UW14764

PATIENT
  Age: 79 Year
  Sex: Female
  Weight: 95.3 kg

DRUGS (1)
  1. ARIMIDEX [Suspect]
     Route: 048

REACTIONS (5)
  - ANXIETY [None]
  - BACK DISORDER [None]
  - INSOMNIA [None]
  - PANIC DISORDER [None]
  - PHARYNGITIS [None]
